FAERS Safety Report 9136144 (Version 1)
Quarter: 2013Q1

REPORT INFORMATION
  Report Type: Spontaneous
  Country: US (occurrence: US)
  Receive Date: 20130304
  Receipt Date: 20130304
  Transmission Date: 20140127
  Serious: No
  Sender: FDA-Public Use
  Company Number: US-ABBOTT-12P-163-0972161-00

PATIENT
  Sex: Male
  Weight: 90.8 kg

DRUGS (13)
  1. ANDROGEL [Suspect]
     Indication: BLOOD TESTOSTERONE DECREASED
     Dosage: 4 PUMPS
     Route: 061
     Dates: start: 2009, end: 2011
  2. ANDROGEL [Suspect]
     Dosage: 2 PUMPS/DAY
     Route: 061
     Dates: start: 2011, end: 2012
  3. ANDROGEL [Suspect]
     Dosage: 1 PUMP PER DAY
     Route: 061
     Dates: start: 2012, end: 201301
  4. ANDROGEL [Suspect]
     Dosage: 2 PUMPS
     Route: 061
     Dates: start: 201301
  5. AMOXICILLIN [Suspect]
     Indication: TOOTH INFECTION
     Dates: start: 201203
  6. CLINDAMYCIN [Suspect]
     Indication: TOOTH INFECTION
     Dates: start: 201203
  7. LEVAQUIN [Suspect]
     Indication: PRODUCT USED FOR UNKNOWN INDICATION
     Dates: start: 2012
  8. MULTI-VITAMIN [Concomitant]
     Indication: PRODUCT USED FOR UNKNOWN INDICATION
  9. BIOTIN [Concomitant]
     Indication: PRODUCT USED FOR UNKNOWN INDICATION
  10. VITAMIN B COMPLEX [Concomitant]
     Indication: PRODUCT USED FOR UNKNOWN INDICATION
  11. VITAMIN C [Concomitant]
     Indication: PRODUCT USED FOR UNKNOWN INDICATION
  12. VITAMIN D [Concomitant]
     Indication: PRODUCT USED FOR UNKNOWN INDICATION
  13. CLARITIN [Concomitant]
     Indication: PRODUCT USED FOR UNKNOWN INDICATION

REACTIONS (24)
  - Toothache [Recovered/Resolved]
  - Decreased appetite [Recovered/Resolved]
  - Malaise [Recovered/Resolved]
  - Asthenia [Recovered/Resolved]
  - Neuralgia [Recovered/Resolved]
  - Tremor [Recovered/Resolved]
  - Weight decreased [Recovered/Resolved]
  - Gastric disorder [Recovered/Resolved]
  - Blood testosterone increased [Recovered/Resolved]
  - Blood testosterone increased [Not Recovered/Not Resolved]
  - Malaise [Not Recovered/Not Resolved]
  - Candida infection [Not Recovered/Not Resolved]
  - Muscle twitching [Recovered/Resolved]
  - Feeling cold [Recovered/Resolved]
  - Blood testosterone increased [Recovered/Resolved]
  - Blood testosterone increased [Recovered/Resolved]
  - Weight increased [Not Recovered/Not Resolved]
  - Insomnia [Not Recovered/Not Resolved]
  - Influenza [Not Recovered/Not Resolved]
  - Chills [Not Recovered/Not Resolved]
  - Malaise [Unknown]
  - Blood testosterone decreased [Recovered/Resolved]
  - Weight decreased [Recovered/Resolved]
  - Tooth infection [Recovered/Resolved]
